FAERS Safety Report 9786959 (Version 2)
Quarter: 2013Q4

REPORT INFORMATION
  Report Type: Report from Study
  Country: US (occurrence: US)
  Receive Date: 20131227
  Receipt Date: 20131227
  Transmission Date: 20140711
  Serious: Yes (Other)
  Sender: FDA-Public Use
  Company Number: US-ABBVIE-13P-163-1158527-00

PATIENT
  Age: 44 Year
  Sex: Male
  Weight: 109.41 kg

DRUGS (2)
  1. HUMIRA [Suspect]
     Indication: RHEUMATOID ARTHRITIS
     Route: 058
     Dates: start: 20120618, end: 20131106
  2. MTX [Suspect]
     Indication: RHEUMATOID ARTHRITIS
     Dates: end: 20130910

REACTIONS (8)
  - Hepatic steatosis [Unknown]
  - Scar [Unknown]
  - Gallbladder polyp [Unknown]
  - Nephrolithiasis [Unknown]
  - Urate nephropathy [Unknown]
  - Nephritis [Unknown]
  - Nephrolithiasis [Unknown]
  - Hepatic enzyme increased [Unknown]
